FAERS Safety Report 19419297 (Version 2)
Quarter: 2022Q3

REPORT INFORMATION
  Report Type: Spontaneous
  Country: CH (occurrence: CH)
  Receive Date: 20210615
  Receipt Date: 20220701
  Transmission Date: 20221027
  Serious: Yes (Hospitalization, Other)
  Sender: FDA-Public Use
  Company Number: None

PATIENT
  Age: 51 Year
  Sex: Female

DRUGS (23)
  1. ALDACTONE [Suspect]
     Active Substance: SPIRONOLACTONE
     Dosage: 50 MG, 1X/DAY
     Route: 048
     Dates: end: 20210507
  2. ALDACTONE [Suspect]
     Active Substance: SPIRONOLACTONE
     Dosage: UNK
  3. ENTRESTO [Suspect]
     Active Substance: SACUBITRIL\VALSARTAN
     Dosage: 25 MG, 2X/DAY
     Route: 048
     Dates: start: 202108
  4. ENTRESTO [Suspect]
     Active Substance: SACUBITRIL\VALSARTAN
     Dosage: 100 MG, 2X/DAY
     Route: 048
     Dates: end: 20210507
  5. CELLCEPT [Suspect]
     Active Substance: MYCOPHENOLATE MOFETIL
     Dosage: 0.75 G, 2X/DAY
     Route: 048
  6. TACROLIMUS [Interacting]
     Active Substance: TACROLIMUS
     Dosage: 0.2 MG, 2X/DAY
     Route: 048
     Dates: start: 202108
  7. TACROLIMUS [Interacting]
     Active Substance: TACROLIMUS
     Dosage: 0.4 MG, 2X/DAY
     Route: 048
     Dates: start: 202105, end: 202108
  8. TACROLIMUS [Interacting]
     Active Substance: TACROLIMUS
     Dosage: 0.6 MG, 2X/DAY
     Route: 048
     Dates: end: 202105
  9. BACTRIM [Suspect]
     Active Substance: SULFAMETHOXAZOLE\TRIMETHOPRIM
     Dosage: 1 DF, 1X/DAY
     Route: 048
  10. NOXAFIL [Interacting]
     Active Substance: POSACONAZOLE
     Dosage: 300 MG, DAILY
     Route: 048
     Dates: start: 20210406
  11. ASPIRIN [Concomitant]
     Active Substance: ASPIRIN
  12. IVABRADINE [Concomitant]
     Active Substance: IVABRADINE
  13. PREDNISONE [Concomitant]
     Active Substance: PREDNISONE
  14. ISAVUCONAZOLE [Concomitant]
     Active Substance: ISAVUCONAZOLE
     Dates: end: 20210406
  15. NEXIUM [Concomitant]
     Active Substance: ESOMEPRAZOLE MAGNESIUM
  16. EUTHYROX [Concomitant]
     Active Substance: LEVOTHYROXINE SODIUM
  17. PREGABALIN [Concomitant]
     Active Substance: PREGABALIN
  18. ALBUTEROL SULFATE [Concomitant]
     Active Substance: ALBUTEROL SULFATE
  19. TOBI [Concomitant]
     Active Substance: TOBRAMYCIN
  20. BETNOVAT [BETAMETHASONE] [Concomitant]
  21. DAFALGAN [Concomitant]
     Active Substance: ACETAMINOPHEN
     Dosage: UNK UNK, AS NEEDED
  22. MOVICOL [Concomitant]
     Active Substance: POLYETHYLENE GLYCOL 3350\POTASSIUM CHLORIDE\SODIUM BICARBONATE\SODIUM CHLORIDE
     Dosage: UNK UNK, AS NEEDED
  23. FIG FRUIT OIL\SORBITOL [Concomitant]
     Active Substance: FIG FRUIT OIL\SORBITOL
     Dosage: UNK UNK, AS NEEDED

REACTIONS (3)
  - Drug interaction [Recovered/Resolved]
  - Hyperkalaemia [Recovered/Resolved]
  - Acute kidney injury [Recovering/Resolving]

NARRATIVE: CASE EVENT DATE: 20210406
